FAERS Safety Report 6037966-2 (Version None)
Quarter: 2009Q1

REPORT INFORMATION
  Report Type: 
  Country: None (occurrence: None)
  Receive Date: 20090115
  Receipt Date: 20090106
  Transmission Date: 20090719
  Serious: Yes (Other)
  Sender: FDA-Public Use
  Company Number: US-AMGEN-KDL282318

PATIENT
  Sex: Female

DRUGS (3)
  1. EPOGEN [Suspect]
     Indication: DRUG USE FOR UNKNOWN INDICATION
     Route: 065
  2. PEGINTERFERON ALFA-2A [Suspect]
     Dates: start: 20070928, end: 20080604
  3. RIBAVIRIN [Suspect]
     Dates: start: 20070928, end: 20080604

REACTIONS (10)
  - DECREASED APPETITE [None]
  - DIABETES MELLITUS INADEQUATE CONTROL [None]
  - FATIGUE [None]
  - HAEMOGLOBIN ABNORMAL [None]
  - HYPERTENSION [None]
  - LARYNGITIS [None]
  - LETHARGY [None]
  - PAIN [None]
  - THERAPEUTIC RESPONSE DECREASED [None]
  - VISION BLURRED [None]
